FAERS Safety Report 6693799-5 (Version None)
Quarter: 2010Q2

REPORT INFORMATION
  Report Type: 
  Country: None (occurrence: None)
  Receive Date: 20100423
  Receipt Date: 20100414
  Transmission Date: 20101027
  Serious: Yes (Other)
  Sender: FDA-Public Use
  Company Number: US-PFIZER INC-2010047505

PATIENT

DRUGS (1)
  1. GEODON [Suspect]
     Dosage: 40 MG, 1X/DAY
     Route: 048

REACTIONS (1)
  - COGNITIVE DISORDER [None]
